FAERS Safety Report 7134524-3 (Version None)
Quarter: 2010Q4

REPORT INFORMATION
  Report Type: 
  Country: None (occurrence: None)
  Receive Date: 20101130
  Receipt Date: 20101130
  Transmission Date: 20110411
  Serious: Yes (Life-Threatening, Other)
  Sender: FDA-Public Use
  Company Number: None

PATIENT
  Age: 79 Year
  Sex: Female
  Weight: 65.7716 kg

DRUGS (5)
  1. MULTAQ [Suspect]
     Indication: TACHYARRHYTHMIA
     Dosage: 400 MG TWICE DAILY PO
     Route: 048
     Dates: start: 20101116, end: 20101122
  2. COUMADIN [Concomitant]
  3. HUMIRA [Concomitant]
  4. VERAPAMIL [Concomitant]
  5. METOPROLOL [Concomitant]

REACTIONS (6)
  - ABDOMINAL PAIN UPPER [None]
  - BONE PAIN [None]
  - DYSPEPSIA [None]
  - HEADACHE [None]
  - URINARY INCONTINENCE [None]
  - VISION BLURRED [None]
